FAERS Safety Report 12722372 (Version 1)
Quarter: 2016Q3

REPORT INFORMATION
  Report Type: Spontaneous
  Country: JP (occurrence: JP)
  Receive Date: 20160907
  Receipt Date: 20160907
  Transmission Date: 20161109
  Serious: Yes (Other)
  Sender: FDA-Public Use
  Company Number: JP-PFIZER INC-2014167595

PATIENT
  Age: 70 Year
  Sex: Female

DRUGS (6)
  1. HALFDIGOXIN KY [Concomitant]
     Dosage: UNK
     Route: 048
  2. MAINTATE [Concomitant]
     Active Substance: BISOPROLOL FUMARATE
     Dosage: UNK
     Route: 048
  3. METHYCOBAL [Concomitant]
     Active Substance: METHYLCOBALAMIN
     Indication: FACIAL PARALYSIS
     Dosage: UNK
  4. LYRICA [Suspect]
     Active Substance: PREGABALIN
     Indication: FACIAL PARALYSIS
     Dosage: 50 MG, 1X/DAY, BEFORE BEDTIME
     Route: 048
  5. LYRICA [Suspect]
     Active Substance: PREGABALIN
     Indication: HEMIPLEGIA
     Dosage: 25 MG, 1X/DAY (BEFORE BEDTIME)
  6. LOXONIN [Concomitant]
     Active Substance: LOXOPROFEN SODIUM
     Dosage: UNK
     Route: 048

REACTIONS (9)
  - Discomfort [Unknown]
  - Feeling abnormal [Unknown]
  - Head injury [Unknown]
  - Foot deformity [Unknown]
  - Depressed level of consciousness [Unknown]
  - Oedema [Unknown]
  - Malaise [Unknown]
  - Product use issue [Unknown]
  - Loss of consciousness [Unknown]

NARRATIVE: CASE EVENT DATE: 20160904
